FAERS Safety Report 9222990 (Version 5)
Quarter: 2013Q3

REPORT INFORMATION
  Report Type: Report from Study
  Country: IL (occurrence: IL)
  Receive Date: 20130410
  Receipt Date: 20130724
  Transmission Date: 20140515
  Serious: Yes (Death, Hospitalization, Other)
  Sender: FDA-Public Use
  Company Number: IL-ROCHE-1212204

PATIENT
  Age: 52 Year
  Sex: Male
  Weight: 81 kg

DRUGS (5)
  1. PEG-INTERFERON ALFA 2A [Suspect]
     Indication: HEPATITIS C
     Route: 058
  2. RIBAVIRIN [Suspect]
     Indication: HEPATITIS C
     Route: 048
  3. FILGRASTIM [Suspect]
     Indication: NEUTROPENIA
     Route: 058
  4. TELAPREVIR [Suspect]
     Indication: HEPATITIS C
     Dosage: 2 TABLETS THREE TIMES IN DAY
     Route: 048
     Dates: start: 20130221, end: 20130405
  5. URSOFALK [Concomitant]
     Dosage: 2 CAPSULE PER 2 DAY
     Route: 065

REACTIONS (4)
  - Multi-organ failure [Fatal]
  - Syncope [Not Recovered/Not Resolved]
  - Fungal sepsis [Not Recovered/Not Resolved]
  - Shock [Unknown]
